FAERS Safety Report 7888046-2 (Version None)
Quarter: 2011Q4

REPORT INFORMATION
  Report Type: 
  Country: None (occurrence: None)
  Receive Date: 20111103
  Receipt Date: 20111026
  Transmission Date: 20120403
  Serious: Yes (Death, Hospitalization)
  Sender: FDA-Public Use
  Company Number: JP-AMGEN-JPNCT2011039672

PATIENT
  Age: 73 Year
  Sex: Male
  Weight: 51 kg

DRUGS (5)
  1. TOPOTECAN [Suspect]
     Indication: COLORECTAL CANCER
     Route: 041
     Dates: start: 20110705, end: 20110705
  2. FLUOROURACIL [Suspect]
     Indication: COLORECTAL CANCER
     Route: 040
     Dates: start: 20110705, end: 20110705
  3. PANITUMUMAB [Suspect]
     Indication: COLORECTAL CANCER
     Dosage: 306 MG, Q2WK
     Route: 041
     Dates: start: 20110705, end: 20110705
  4. LEVOLEUCOVORIN CALCIUM [Suspect]
     Indication: COLORECTAL CANCER
     Route: 041
     Dates: start: 20110705, end: 20110705
  5. FLUOROURACIL [Suspect]
     Route: 041
     Dates: start: 20110705, end: 20110707

REACTIONS (4)
  - PANCYTOPENIA [None]
  - DELIRIUM [None]
  - COLORECTAL CANCER [None]
  - PNEUMONIA [None]
